FAERS Safety Report 8837780 (Version 3)
Quarter: 2013Q1

REPORT INFORMATION
  Report Type: Spontaneous
  Country: BR (occurrence: BR)
  Receive Date: 20121012
  Receipt Date: 20130128
  Transmission Date: 20140127
  Serious: Yes (Death, Other)
  Sender: FDA-Public Use
  Company Number: BR-JNJFOC-20121007203

PATIENT
  Sex: Female

DRUGS (1)
  1. XARELTO [Suspect]
     Indication: GALLBLADDER OPERATION
     Route: 048

REACTIONS (7)
  - Intestinal ischaemia [Fatal]
  - Large intestine perforation [Fatal]
  - Hepatic ischaemia [Unknown]
  - Vena cava injury [Unknown]
  - Arterial injury [Unknown]
  - Haemorrhage [Unknown]
  - Colostomy infection [Unknown]
